FAERS Safety Report 23691624 (Version 2)
Quarter: 2024Q2

REPORT INFORMATION
  Report Type: Report from Study
  Country: US (occurrence: US)
  Receive Date: 20240401
  Receipt Date: 20240408
  Transmission Date: 20240715
  Serious: Yes (Hospitalization, Other)
  Sender: FDA-Public Use
  Company Number: US-BAYER-2024A017344

PATIENT
  Age: 28 Year
  Sex: Female
  Weight: 68.027 kg

DRUGS (23)
  1. ADEMPAS [Suspect]
     Active Substance: RIOCIGUAT
     Indication: Pulmonary arterial hypertension
     Dosage: 0.5 MG
     Dates: start: 20231130
  2. ADEMPAS [Suspect]
     Active Substance: RIOCIGUAT
     Indication: Product used for unknown indication
     Dosage: 0.5 MG, TID
     Route: 048
     Dates: start: 20231222
  3. UPTRAVI [Suspect]
     Active Substance: SELEXIPAG
     Indication: Product used for unknown indication
     Dosage: 200 MCG TWICE A DAY
  4. UPTRAVI [Suspect]
     Active Substance: SELEXIPAG
     Indication: Product used for unknown indication
     Dosage: 400 MCG TWICE A DAY
  5. UPTRAVI [Suspect]
     Active Substance: SELEXIPAG
     Indication: Product used for unknown indication
     Dosage: 600 MCG
  6. REMODULIN [Suspect]
     Active Substance: TREPROSTINIL
     Indication: Pulmonary arterial hypertension
     Dosage: 0.006 ?G/KG
  7. AMBRISENTAN [Suspect]
     Active Substance: AMBRISENTAN
     Indication: Product used for unknown indication
     Dosage: 10 MG, QD
  8. ZOFRAN [Suspect]
     Active Substance: ONDANSETRON HYDROCHLORIDE
     Indication: Nausea
  9. OMEPRAZOLE [Suspect]
     Active Substance: OMEPRAZOLE
     Indication: Product used for unknown indication
  10. TYLENOL EXTRA STRENGTH [Suspect]
     Active Substance: ACETAMINOPHEN
     Indication: Neck pain
  11. FAMOTIDINE [Concomitant]
     Active Substance: FAMOTIDINE
  12. ENOXAPARIN SODIUM [Concomitant]
     Active Substance: ENOXAPARIN SODIUM
  13. BISACODYL [Concomitant]
     Active Substance: BISACODYL
  14. PROCHLORPERAZINE MALEATE [Concomitant]
     Active Substance: PROCHLORPERAZINE MALEATE
  15. OXYGEN [Concomitant]
     Active Substance: OXYGEN
  16. FUROSEMIDE [Concomitant]
     Active Substance: FUROSEMIDE
  17. ACETAMINOPHEN [Concomitant]
     Active Substance: ACETAMINOPHEN
  18. LOPERAMIDE [Concomitant]
     Active Substance: LOPERAMIDE
  19. ONDANSETRON HYDROCHLORIDE [Concomitant]
     Active Substance: ONDANSETRON HYDROCHLORIDE
  20. SODIUM CHLORIDE [Concomitant]
     Active Substance: SODIUM CHLORIDE
  21. SODIUM CHLORIDE [Concomitant]
     Active Substance: SODIUM CHLORIDE
  22. DEPO-PROVERA [Concomitant]
     Active Substance: MEDROXYPROGESTERONE ACETATE
  23. NICOTINE POLACRILEX [Concomitant]
     Active Substance: NICOTINE

REACTIONS (37)
  - Tonsillitis [None]
  - Choking [None]
  - Abortion induced [None]
  - Maternal exposure during pregnancy [None]
  - Contraindicated product administered [None]
  - Nausea [None]
  - Vomiting [Not Recovered/Not Resolved]
  - Hypotension [None]
  - Abdominal discomfort [None]
  - Illness [None]
  - Feeding disorder [None]
  - Mobility decreased [None]
  - Dizziness [None]
  - Dizziness [None]
  - Vomiting [None]
  - Dizziness [Not Recovered/Not Resolved]
  - Paraesthesia [None]
  - Nausea [Recovered/Resolved]
  - Drug interaction [None]
  - Flushing [Not Recovered/Not Resolved]
  - Dyspepsia [Not Recovered/Not Resolved]
  - Neck pain [Recovered/Resolved]
  - Nausea [Not Recovered/Not Resolved]
  - Headache [None]
  - Pain in jaw [Not Recovered/Not Resolved]
  - Vomiting [Not Recovered/Not Resolved]
  - Neck pain [None]
  - Pain [None]
  - Nausea [None]
  - Limb discomfort [None]
  - Hormone level abnormal [None]
  - Illness [Not Recovered/Not Resolved]
  - Vomiting [None]
  - Hypertension [None]
  - Vomiting projectile [None]
  - Tremor [None]
  - Pharyngitis streptococcal [None]

NARRATIVE: CASE EVENT DATE: 20240319
